FAERS Safety Report 6242218-1 (Version None)
Quarter: 2009Q2

REPORT INFORMATION
  Report Type: 
  Country: None (occurrence: None)
  Receive Date: 20090624
  Receipt Date: 20090622
  Transmission Date: 20091009
  Serious: Yes (Life-Threatening, Hospitalization)
  Sender: FDA-Public Use
  Company Number: US-BRISTOL-MYERS SQUIBB COMPANY-14673800

PATIENT
  Age: 60 Year
  Sex: Female

DRUGS (8)
  1. TAXOL [Suspect]
     Indication: BREAST CANCER
     Dosage: START DATE 28NOV06
     Route: 065
     Dates: start: 20061226, end: 20061226
  2. BEVACIZUMAB [Suspect]
     Indication: BREAST CANCER
     Dosage: START DATE 28NOV06 STOP DATE 10JAN07 THERAPY DURATION 43 DAYS
     Route: 042
     Dates: start: 20061226, end: 20061226
  3. ARANESP [Concomitant]
     Indication: ANAEMIA
     Route: 058
     Dates: start: 20061226, end: 20061226
  4. LEVAQUIN [Concomitant]
     Indication: PNEUMONIA
     Route: 048
     Dates: start: 20061201, end: 20070108
  5. ROCEPHIN [Concomitant]
     Indication: PNEUMONIA
     Route: 042
     Dates: start: 20061228, end: 20070101
  6. AZITHROMYCIN [Concomitant]
     Indication: PNEUMONIA
     Dates: start: 20061228, end: 20070101
  7. ZOSYN [Concomitant]
     Indication: PNEUMONIA
     Route: 042
     Dates: start: 20061228, end: 20070101
  8. LOVENOX [Concomitant]
     Indication: PULMONARY EMBOLISM
     Route: 042
     Dates: start: 20061229, end: 20070103

REACTIONS (4)
  - CARDIAC FAILURE CONGESTIVE [None]
  - PLEURAL EFFUSION [None]
  - PNEUMONIA [None]
  - PULMONARY EMBOLISM [None]
